FAERS Safety Report 8900615 (Version 1)
Quarter: 2012Q4

REPORT INFORMATION
  Report Type: 
  Country: US (occurrence: US)
  Receive Date: 20121109
  Receipt Date: 20121109
  Transmission Date: 20130627
  Serious: Yes (Other)
  Sender: FDA-Public Use
  Company Number: US-ROXANE LABORATORIES, INC.-2012-RO-02351RO

PATIENT
  Age: 38 Year
  Sex: Female

DRUGS (11)
  1. PREDNISONE [Suspect]
  2. RISPERDAL [Suspect]
     Indication: PSYCHOTIC DISORDER
     Dates: start: 201109
  3. CELEXA [Suspect]
     Indication: DEPRESSION
  4. CELEXA [Suspect]
     Indication: PSYCHOTIC DISORDER
  5. PLAQUENIL [Suspect]
     Indication: SYSTEMIC LUPUS ERYTHEMATOSUS
  6. CELLCEPT [Suspect]
     Indication: SYSTEMIC LUPUS ERYTHEMATOSUS
  7. ELAVIL [Suspect]
  8. NEURONTIN [Suspect]
  9. FOSAMAX [Suspect]
  10. SYNTHROID [Suspect]
  11. ZOCOR [Suspect]

REACTIONS (1)
  - Galactorrhoea [Not Recovered/Not Resolved]
